FAERS Safety Report 5724474-9 (Version None)
Quarter: 2008Q2

REPORT INFORMATION
  Report Type: 
  Country: None (occurrence: None)
  Receive Date: 20080429
  Receipt Date: 20080422
  Transmission Date: 20081010
  Serious: Yes (Other)
  Sender: FDA-Public Use
  Company Number: E2090-00348-SPO-JP

PATIENT
  Age: 65 Year
  Sex: Male

DRUGS (38)
  1. EXCEGRAN (ZONISAMIDE) [Suspect]
     Indication: CONVULSION
     Dosage: 200 MG, 2 IN 1 D, ORAL, 400 MG, 2 IN 1 D, ORAL
     Route: 048
     Dates: start: 20071013, end: 20071029
  2. EXCEGRAN (ZONISAMIDE) [Suspect]
     Indication: HEAD INJURY
     Dosage: 200 MG, 2 IN 1 D, ORAL, 400 MG, 2 IN 1 D, ORAL
     Route: 048
     Dates: start: 20071013, end: 20071029
  3. EXCEGRAN (ZONISAMIDE) [Suspect]
     Indication: CONVULSION
     Dosage: 200 MG, 2 IN 1 D, ORAL, 400 MG, 2 IN 1 D, ORAL
     Route: 048
     Dates: start: 20071020, end: 20071104
  4. EXCEGRAN (ZONISAMIDE) [Suspect]
     Indication: HEAD INJURY
     Dosage: 200 MG, 2 IN 1 D, ORAL, 400 MG, 2 IN 1 D, ORAL
     Route: 048
     Dates: start: 20071020, end: 20071104
  5. VANCOMYCIN HYDROCHLORIDE [Concomitant]
  6. CIPROFLOXACIN HCL [Concomitant]
  7. PERDIPINE LA (NICARDIPINE HYDROCHLORIDE) [Concomitant]
  8. ENALAPRIL MALEATE [Concomitant]
  9. FAMOTIDINE [Concomitant]
  10. CALONAL (PARACETAMOL) [Concomitant]
  11. ALINAMIN-F (FURSULTIAMINE) [Concomitant]
  12. AMSULMERCK (SULBACTAM SODIUM, AMPICILLIN SODIUM) [Concomitant]
  13. OMEPRAL (OMEPRAZOLE) [Concomitant]
  14. CLAFORAN [Concomitant]
  15. GLUACETO 35 (MAINTENANCE MEDIUM WITH GLUCOSE) [Concomitant]
  16. ZYVOX [Concomitant]
  17. ZANTAC [Concomitant]
  18. CEFTAZIDIME [Concomitant]
  19. SOLYUGEN F (ACETATED RINGER) [Concomitant]
  20. SOLYUGEN G (ACETATED RINGER'S SOLUTION WITH GLUCOSE) [Concomitant]
  21. NEOLAMIN MULTI V (NEOLAMIN MULTI V) [Concomitant]
  22. NEUTROGIN (LENOGRASTIM) [Concomitant]
  23. N TWIN (MIXED AMINO ACID, CARBOHYDRATE, ELECTROLYTE COMBINED DRUG) [Concomitant]
  24. FLUID (MIXED AMINO ACID, CARBOHYDRATE, ELECTROLYTE VITAMIN COMBINE) [Concomitant]
  25. VITACIMIN (ASCORBIC ACID) [Concomitant]
  26. MULTIVITAMIN ADDITIVE [Concomitant]
  27. MUSCURATE (VECURONIUM BROMIDE) [Concomitant]
  28. MIDAZOLAM HCL [Concomitant]
  29. SODIUM BICARBONATE [Concomitant]
  30. METILON (METAMIZOLE SODIUM) [Concomitant]
  31. MEDLENIK (MANGANESE CHLORIDE, ZINC SULFATE COMBINED DRUG) [Concomitant]
  32. SODIUM CHLORIDE [Concomitant]
  33. ALOTEC (ORCIPRENALINE SULFATE) [Concomitant]
  34. INTAL [Concomitant]
  35. INDACIN (INDOMETACIN) [Concomitant]
  36. HOKUNALIN TAPE (TULOBUTEROL HYDROCHLORIDE) [Concomitant]
  37. VOLTAREN [Concomitant]
  38. LEPETAN (BUPRENORPHINE HYDROCHLORIDE) [Concomitant]

REACTIONS (4)
  - ERYTHEMA [None]
  - GRANULOCYTOPENIA [None]
  - METABOLIC ACIDOSIS [None]
  - WHITE BLOOD CELL COUNT DECREASED [None]
